FAERS Safety Report 7186376-3 (Version None)
Quarter: 2010Q4

REPORT INFORMATION
  Report Type: 
  Country: None (occurrence: None)
  Receive Date: 20101222
  Receipt Date: 20100621
  Transmission Date: 20110411
  Serious: No
  Sender: FDA-Public Use
  Company Number: US-AMGEN-KDL415122

PATIENT

DRUGS (16)
  1. ENBREL [Suspect]
     Indication: PSORIATIC ARTHROPATHY
     Dosage: 50 MG, QWK
     Route: 058
     Dates: start: 20100401
  2. ENBREL [Suspect]
     Indication: PSORIASIS
  3. LEVOTHYROXINE SODIUM [Concomitant]
     Dosage: .175 MG, QD
  4. SERTRALINE HYDROCHLORIDE [Concomitant]
     Dosage: 100 MG, QD
  5. PANTOPRAZOLE SODIUM [Concomitant]
     Dosage: UNK UNK, QD
  6. MELOXICAM [Concomitant]
     Dosage: 15 MG, QD
  7. CLOBETASOL PROPIONATE [Concomitant]
     Dosage: .05 %, BID
  8. PROTOPIC [Concomitant]
     Dosage: .1 %, UNK
  9. NAPROXEN [Concomitant]
     Dosage: 600 MG, BID
  10. ONE-A-DAY [Concomitant]
     Dosage: UNK UNK, QD
  11. TOCOPHEROL CONCENTRATE CAP [Concomitant]
     Dosage: UNK UNK, BID
  12. GUAIFENESIN [Concomitant]
     Dosage: 200 MG, UNK
  13. GLUCOSAMINE W/CHONDROITIN SULFATES [Concomitant]
     Dosage: UNK UNK, BID
  14. ACETYLSALICYLIC ACID [Concomitant]
     Dosage: UNK UNK, QD
  15. CLOBETASOL PROPIONATE [Concomitant]
     Dosage: .05 %, UNK
  16. DENOREX MEDICATED SHAMPOO [Concomitant]
     Dosage: 3 %, UNK

REACTIONS (5)
  - FATIGUE [None]
  - INJECTION SITE ERYTHEMA [None]
  - INJECTION SITE PAIN [None]
  - INSOMNIA [None]
  - NASOPHARYNGITIS [None]
